FAERS Safety Report 12507754 (Version 2)
Quarter: 2016Q3

REPORT INFORMATION
  Report Type: Spontaneous
  Country: US (occurrence: US)
  Receive Date: 20160629
  Receipt Date: 20160725
  Transmission Date: 20161109
  Serious: No
  Sender: FDA-Public Use
  Company Number: US-PFIZER INC-2016302416

PATIENT
  Age: 81 Year
  Sex: Female
  Weight: 62 kg

DRUGS (3)
  1. GENOTROPIN MQ [Suspect]
     Active Substance: SOMATROPIN
     Indication: ARTHRITIS
     Dosage: 0.06 MG, UNK (ONE WAS 0.02 AND ONE WAS 0.04)
  2. GENOTROPIN [Suspect]
     Active Substance: SOMATROPIN
     Indication: ANXIETY
  3. GENOTROPIN [Suspect]
     Active Substance: SOMATROPIN
     Indication: DEPRESSION

REACTIONS (7)
  - Musculoskeletal pain [Unknown]
  - Drug ineffective for unapproved indication [Unknown]
  - Pain [Unknown]
  - Myalgia [Recovered/Resolved]
  - Neck pain [Recovered/Resolved]
  - Musculoskeletal disorder [Unknown]
  - Product use issue [Unknown]
